FAERS Safety Report 21145428 (Version 2)
Quarter: 2022Q3

REPORT INFORMATION
  Report Type: Spontaneous
  Country: IT (occurrence: IT)
  Receive Date: 20220729
  Receipt Date: 20220803
  Transmission Date: 20221027
  Serious: Yes (Other)
  Sender: FDA-Public Use
  Company Number: IT-MINISAL02-874953

PATIENT
  Age: 19 Year
  Sex: Female

DRUGS (3)
  1. QUETIAPINE [Suspect]
     Active Substance: QUETIAPINE
     Indication: Intentional self-injury
     Dosage: 50 MILLIGRAM
     Route: 048
     Dates: start: 20210101, end: 20220323
  2. XANAX [Suspect]
     Active Substance: ALPRAZOLAM
     Indication: Intentional self-injury
     Dosage: 2,5MG/TOTALE
     Route: 048
     Dates: start: 20220323, end: 20220323
  3. PAROXETINE [Concomitant]
     Active Substance: PAROXETINE
     Indication: Personality disorder
     Dosage: 20 MILLIGRAM
     Route: 048
     Dates: start: 20210101, end: 20220323

REACTIONS (3)
  - Intentional product misuse [Recovered/Resolved]
  - Drug abuse [Recovered/Resolved]
  - Sedation [Recovered/Resolved]

NARRATIVE: CASE EVENT DATE: 20220323
